FAERS Safety Report 19680692 (Version 3)
Quarter: 2021Q4

REPORT INFORMATION
  Report Type: Report from Study
  Country: DE (occurrence: DE)
  Receive Date: 20210810
  Receipt Date: 20211104
  Transmission Date: 20220303
  Serious: Yes (Other)
  Sender: FDA-Public Use
  Company Number: DE-PFIZER INC-202100960959

PATIENT
  Age: 57 Year
  Sex: Female
  Weight: 75 kg

DRUGS (6)
  1. XELJANZ XR [Suspect]
     Active Substance: TOFACITINIB CITRATE
     Indication: Rheumatoid arthritis
     Dosage: 11 MG, 1X/DAY, 1-0-0
     Dates: start: 20200930, end: 20210726
  2. ARCOXIA [Suspect]
     Active Substance: ETORICOXIB
     Indication: Pain
     Dosage: UNK
     Dates: start: 20210120, end: 20210608
  3. FUROSEMIDE [Concomitant]
     Active Substance: FUROSEMIDE
     Indication: Lymphoedema
     Dosage: UNK
     Dates: start: 2010
  4. BENSERAZIDE\LEVODOPA [Concomitant]
     Active Substance: BENSERAZIDE\LEVODOPA
     Indication: Restless legs syndrome
     Dosage: UNK
     Dates: start: 201403
  5. EDOXABAN TOSYLATE [Concomitant]
     Active Substance: EDOXABAN TOSYLATE
     Indication: Mitral valve prolapse
     Dosage: UNK
     Dates: start: 201707
  6. METOPROLOL [Concomitant]
     Active Substance: METOPROLOL
     Indication: Mitral valve prolapse
     Dosage: UNK
     Dates: start: 201707

REACTIONS (7)
  - Renal impairment [Recovering/Resolving]
  - Hepatic enzyme increased [Recovering/Resolving]
  - Drug ineffective [Not Recovered/Not Resolved]
  - Blood urea increased [Recovering/Resolving]
  - Blood uric acid increased [Recovering/Resolving]
  - Alanine aminotransferase increased [Recovering/Resolving]
  - Gamma-glutamyltransferase increased [Recovering/Resolving]

NARRATIVE: CASE EVENT DATE: 20210509
